FAERS Safety Report 9128766 (Version 3)
Quarter: 2013Q3

REPORT INFORMATION
  Report Type: Spontaneous
  Country: NO (occurrence: NO)
  Receive Date: 20130125
  Receipt Date: 20130819
  Transmission Date: 20140515
  Serious: Yes (Other)
  Sender: FDA-Public Use
  Company Number: PHHY2013NO006376

PATIENT
  Sex: Female

DRUGS (7)
  1. GILENYA [Suspect]
     Indication: MULTIPLE SCLEROSIS
     Route: 048
     Dates: start: 201011
  2. GILENYA [Suspect]
     Dosage: 0.5 MG, QD
     Route: 048
     Dates: start: 201111
  3. MICROGYNON [Concomitant]
     Indication: CONTRACEPTION
     Dates: start: 2010
  4. IBUX [Concomitant]
     Indication: BACK PAIN
     Dosage: WHEN NEEDED
  5. XEOMIN [Concomitant]
     Indication: FACIAL SPASM
     Dates: start: 201110
  6. TOVIAZ [Concomitant]
  7. PARACET [Concomitant]
     Indication: BACK PAIN
     Dosage: WHEN NEEDED

REACTIONS (3)
  - Cervical dysplasia [Unknown]
  - Papilloma viral infection [Unknown]
  - Anogenital warts [Recovering/Resolving]
